FAERS Safety Report 7883349-X (Version None)
Quarter: 2011Q4

REPORT INFORMATION
  Report Type: 
  Country: None (occurrence: None)
  Receive Date: 20111102
  Receipt Date: 20111102
  Transmission Date: 20120403
  Serious: Yes (Hospitalization)
  Sender: FDA-Public Use
  Company Number: None

PATIENT
  Age: 48 Year
  Sex: Female
  Weight: 88.5 kg

DRUGS (1)
  1. ZOSYN [Suspect]
     Indication: SKIN ULCER
     Dosage: 4.5G
     Route: 042
     Dates: start: 20110722, end: 20110815

REACTIONS (2)
  - NEUTROPENIA [None]
  - WHITE BLOOD CELL COUNT DECREASED [None]
